FAERS Safety Report 19270527 (Version 2)
Quarter: 2021Q2

REPORT INFORMATION
  Report Type: Spontaneous
  Country: JP (occurrence: JP)
  Receive Date: 20210518
  Receipt Date: 20210601
  Transmission Date: 20210717
  Serious: Yes (Other)
  Sender: FDA-Public Use
  Company Number: JP-OTSUKA-2021_016251

PATIENT
  Age: 3 Decade
  Sex: Female

DRUGS (14)
  1. BLONANSERINE [Concomitant]
     Indication: SCHIZOPHRENIA
     Dosage: 24 MG, QD
     Route: 065
  2. ABILIFY [Suspect]
     Active Substance: ARIPIPRAZOLE
     Dosage: UNK
     Route: 065
  3. QUETIAPINE. [Concomitant]
     Active Substance: QUETIAPINE
     Dosage: 175 MG, QD
     Route: 065
  4. ABILIFY [Suspect]
     Active Substance: ARIPIPRAZOLE
     Dosage: 30 MG/DAY
     Route: 065
  5. REXULTI [Suspect]
     Active Substance: BREXPIPRAZOLE
     Indication: SCHIZOPHRENIA
     Dosage: UNK
     Route: 065
  6. BLONANSERINE [Concomitant]
     Dosage: 8 MG, QD
     Route: 065
  7. BLONANSERINE [Concomitant]
     Dosage: 24 MG, QD
     Route: 065
  8. CLOZAPINE. [Concomitant]
     Active Substance: CLOZAPINE
     Indication: PRODUCT USED FOR UNKNOWN INDICATION
     Dosage: UNK
     Route: 065
  9. ABILIFY [Suspect]
     Active Substance: ARIPIPRAZOLE
     Dosage: 12 MG/DAY
     Route: 065
  10. OLANZAPINE. [Concomitant]
     Active Substance: OLANZAPINE
     Indication: SCHIZOPHRENIA
     Dosage: UNK
     Route: 065
  11. ABILIFY [Suspect]
     Active Substance: ARIPIPRAZOLE
     Indication: SCHIZOPHRENIA
     Dosage: 30 MG/DAY
     Route: 065
  12. QUETIAPINE. [Concomitant]
     Active Substance: QUETIAPINE
     Indication: SCHIZOPHRENIA
     Dosage: 225 MG, QD
     Route: 065
  13. QUETIAPINE. [Concomitant]
     Active Substance: QUETIAPINE
     Dosage: 750 MG, QD
     Route: 065
  14. HALOPERIDOL. [Concomitant]
     Active Substance: HALOPERIDOL
     Indication: SCHIZOPHRENIA
     Dosage: 6 MG, QD
     Route: 065

REACTIONS (10)
  - Malaise [Unknown]
  - Akathisia [Unknown]
  - Condition aggravated [Unknown]
  - Hallucination, auditory [Unknown]
  - Therapeutic response decreased [Unknown]
  - Persecutory delusion [Unknown]
  - Psychiatric symptom [Unknown]
  - Constipation [Unknown]
  - Drug ineffective [Unknown]
  - Gaze palsy [Unknown]
